FAERS Safety Report 6970936-6 (Version None)
Quarter: 2010Q3

REPORT INFORMATION
  Report Type: 
  Country: None (occurrence: None)
  Receive Date: 20100908
  Receipt Date: 20100903
  Transmission Date: 20110219
  Serious: Yes (Death, Hospitalization)
  Sender: FDA-Public Use
  Company Number: JP-BAYER-200913358BYL

PATIENT
  Age: 78 Year
  Sex: Female
  Weight: 47 kg

DRUGS (5)
  1. NEXAVAR [Suspect]
     Indication: HEPATIC NEOPLASM MALIGNANT
     Dosage: TOTAL DAILY DOSE: 800 MG  UNIT DOSE: 200 MG
     Route: 048
     Dates: start: 20090826, end: 20100201
  2. AMLODIPINE BESYLATE [Concomitant]
     Indication: HYPERTENSION
     Dosage: UNIT DOSE: 5 MG
     Route: 048
     Dates: start: 20030101, end: 20100529
  3. URSO 250 [Concomitant]
     Indication: GASTRITIS
     Dosage: UNIT DOSE: 100 MG
     Route: 048
     Dates: start: 20030101, end: 20100529
  4. SELBEX [Concomitant]
     Indication: GASTRITIS
     Dosage: UNIT DOSE: 0.5 G
     Route: 048
     Dates: start: 20030101, end: 20100529
  5. LASIX [Concomitant]
     Indication: OEDEMA
     Dosage: UNIT DOSE: 20 MG
     Route: 048
     Dates: start: 20100129, end: 20100529

REACTIONS (3)
  - DIARRHOEA [None]
  - HEPATIC FAILURE [None]
  - PALMAR-PLANTAR ERYTHRODYSAESTHESIA SYNDROME [None]
